FAERS Safety Report 13030434 (Version 4)
Quarter: 2017Q3

REPORT INFORMATION
  Report Type: Spontaneous
  Country: JP (occurrence: JP)
  Receive Date: 20161215
  Receipt Date: 20170724
  Transmission Date: 20171127
  Serious: Yes (Hospitalization, Other)
  Sender: FDA-Public Use
  Company Number: PHJP2016JP036318

PATIENT
  Age: 81 Year
  Sex: Male

DRUGS (7)
  1. YOKUKANSAN [Concomitant]
     Active Substance: HERBALS
     Indication: PRODUCT USED FOR UNKNOWN INDICATION
     Dosage: UNK
     Route: 048
  2. EXELON PATCH [Suspect]
     Active Substance: RIVASTIGMINE
     Dosage: 9.5 MG QD (PATCH 10 (CM2), 18 MG RIVASTIGMINE BASE)
     Route: 062
     Dates: end: 201702
  3. EXELON PATCH [Suspect]
     Active Substance: RIVASTIGMINE
     Dosage: 6.9 MG QD (PATCH 7.5 (CM2), 13.5 MG RIVASTIGMINE BASE)
     Route: 062
  4. ARICEPT [Concomitant]
     Active Substance: DONEPEZIL HYDROCHLORIDE
     Indication: PRODUCT USED FOR UNKNOWN INDICATION
     Dosage: UNK
     Route: 048
     Dates: start: 200810, end: 201210
  5. EXELON PATCH [Suspect]
     Active Substance: RIVASTIGMINE
     Dosage: 4.6 MG, QD (PATCH 5 (CM2), 9 MG RIVASTIGMINE BASE)
     Route: 062
  6. EXELON PATCH [Suspect]
     Active Substance: RIVASTIGMINE
     Indication: DEMENTIA ALZHEIMER^S TYPE
     Dosage: 1.9 MG QD (PATCH 2.5 (CM2), 4.5 MG RIVASTIGMINE BASE)
     Route: 062
     Dates: start: 201210
  7. RISPERIDONE. [Concomitant]
     Active Substance: RISPERIDONE
     Indication: PRODUCT USED FOR UNKNOWN INDICATION
     Dosage: UNK
     Route: 048
     Dates: start: 201702

REACTIONS (6)
  - Concomitant disease aggravated [Unknown]
  - Agnosia [Unknown]
  - Lacunar infarction [Unknown]
  - Dementia Alzheimer^s type [Unknown]
  - Abnormal behaviour [Unknown]
  - Disease progression [Unknown]

NARRATIVE: CASE EVENT DATE: 2014
